FAERS Safety Report 8767365 (Version 1)
Quarter: 2012Q4

REPORT INFORMATION
  Report Type: 
  Country: US (occurrence: US)
  Receive Date: 20120904
  Receipt Date: 20120904
  Transmission Date: 20130627
  Serious: Yes (Hospitalization)
  Sender: FDA-Public Use
  Company Number: US-VERTEX PHARMACEUTICAL INC.-2012-020175

PATIENT
  Age: 48 Year
  Sex: Male
  Weight: 75 kg

DRUGS (4)
  1. VX-950 [Suspect]
     Indication: HEPATITIS C
     Dosage: 750 mg, tid
     Route: 048
  2. RIBAPAK [Concomitant]
     Indication: HEPATITIS C
     Dosage: UNK
  3. PEGASYS [Concomitant]
     Indication: HEPATITIS C
     Dosage: 180 UNK, UNK
  4. PAXIL [Concomitant]
     Dosage: 10 mg, UNK

REACTIONS (2)
  - Diverticulitis [Unknown]
  - Weight decreased [Unknown]
